FAERS Safety Report 18681252 (Version 2)
Quarter: 2021Q1

REPORT INFORMATION
  Report Type: Spontaneous
  Country: NL (occurrence: NL)
  Receive Date: 20201229
  Receipt Date: 20210105
  Transmission Date: 20210419
  Serious: Yes (Other)
  Sender: FDA-Public Use
  Company Number: NL-JAZZ-2020-NL-017300

PATIENT
  Age: 73 Year
  Sex: Male
  Weight: 67.3 kg

DRUGS (6)
  1. ZEPZELCA [Suspect]
     Active Substance: LURBINECTEDIN
     Dosage: 5.7 MILLIGRAM
     Route: 042
     Dates: start: 20200914, end: 20200914
  2. ZEPZELCA [Suspect]
     Active Substance: LURBINECTEDIN
     Indication: MESOTHELIOMA
     Dosage: 5.8 MILLIGRAM
     Route: 042
     Dates: start: 20200803, end: 20200803
  3. ZEPZELCA [Suspect]
     Active Substance: LURBINECTEDIN
     Dosage: 5.7 MILLIGRAM
     Route: 042
     Dates: start: 20200824, end: 20200824
  4. ZEPZELCA [Suspect]
     Active Substance: LURBINECTEDIN
     Dosage: 5.8 MILLIGRAM
     Route: 042
     Dates: start: 20201005, end: 20201005
  5. DEXAMETHASONE. [Concomitant]
     Active Substance: DEXAMETHASONE
     Indication: PRODUCT USED FOR UNKNOWN INDICATION
     Dosage: UNK
     Dates: start: 20200803, end: 20200914
  6. GRANISETRONE [Concomitant]
     Indication: PRODUCT USED FOR UNKNOWN INDICATION
     Dosage: UNK
     Dates: start: 20200803, end: 20200914

REACTIONS (1)
  - Phlebitis [Unknown]
